FAERS Safety Report 5566936-3 (Version None)
Quarter: 2007Q4

REPORT INFORMATION
  Report Type: 
  Country: None (occurrence: None)
  Receive Date: 20071219
  Receipt Date: 20070409
  Transmission Date: 20080405
  Serious: No
  Sender: FDA-Public Use
  Company Number: US-BRISTOL-MYERS SQUIBB COMPANY-13742648

PATIENT
  Sex: Female

DRUGS (2)
  1. PRAVACHOL [Suspect]
  2. LIPITOR [Concomitant]

REACTIONS (2)
  - BONE PAIN [None]
  - FATIGUE [None]
